FAERS Safety Report 6255512-5 (Version None)
Quarter: 2009Q2

REPORT INFORMATION
  Report Type: 
  Country: None (occurrence: None)
  Receive Date: 20090630
  Receipt Date: 20090619
  Transmission Date: 20091009
  Serious: Yes (Hospitalization, Other)
  Sender: FDA-Public Use
  Company Number: 2009EU001820

PATIENT
  Age: 73 Year
  Sex: Male
  Weight: 55 kg

DRUGS (3)
  1. PROGRAF [Suspect]
     Indication: RENAL TRANSPLANT
     Dosage: 2 MG, OTHER, IV NOS; 4 MG, BID
     Route: 042
     Dates: start: 20090428, end: 20090429
  2. CELLCEPT (MYCOPHENOLATE MOFETIL)` [Concomitant]
  3. PREDNISONE [Concomitant]

REACTIONS (5)
  - DRUG ADMINISTRATION ERROR [None]
  - DRUG LEVEL INCREASED [None]
  - OVERDOSE [None]
  - POST PROCEDURAL INFECTION [None]
  - RENAL FAILURE ACUTE [None]
